FAERS Safety Report 9144811 (Version 1)
Quarter: 2013Q1

REPORT INFORMATION
  Report Type: Report from Study
  Country: US (occurrence: US)
  Receive Date: 20130307
  Receipt Date: 20130307
  Transmission Date: 20140127
  Serious: Yes (Hospitalization, Other)
  Sender: FDA-Public Use
  Company Number: US-ABBOTT-13P-163-1048918-00

PATIENT
  Age: 50 Year
  Sex: Male
  Weight: 86.26 kg

DRUGS (11)
  1. HUMIRA [Suspect]
     Indication: ANKYLOSING SPONDYLITIS
     Dates: start: 201206, end: 201210
  2. HUMIRA [Suspect]
     Dates: start: 201210, end: 20130106
  3. HUMIRA [Suspect]
     Dates: start: 20130204
  4. CYMBALTA [Concomitant]
     Indication: DEPRESSION
  5. FLEXERIL [Concomitant]
     Indication: MUSCLE SPASMS
  6. NORCO [Concomitant]
     Indication: PAIN
  7. PERCOCET [Concomitant]
     Indication: PAIN
  8. ALEVE [Concomitant]
     Indication: PAIN
  9. MORPHINE [Concomitant]
     Indication: PAIN
  10. TYLENOL [Concomitant]
     Indication: PAIN
  11. PREDNISONE [Concomitant]
     Indication: ANKYLOSING SPONDYLITIS

REACTIONS (12)
  - Limb injury [Recovering/Resolving]
  - Infection [Recovering/Resolving]
  - Infection [Recovering/Resolving]
  - Local swelling [Recovered/Resolved]
  - Night sweats [Not Recovered/Not Resolved]
  - Ankylosing spondylitis [Not Recovered/Not Resolved]
  - Abdominal discomfort [Not Recovered/Not Resolved]
  - Pain [Not Recovered/Not Resolved]
  - Pain in extremity [Not Recovered/Not Resolved]
  - Arthralgia [Not Recovered/Not Resolved]
  - Drug ineffective [Not Recovered/Not Resolved]
  - Back pain [Not Recovered/Not Resolved]
